FAERS Safety Report 14538064 (Version 1)
Quarter: 2018Q1

REPORT INFORMATION
  Report Type: Report from Study
  Country: US (occurrence: US)
  Receive Date: 20180216
  Receipt Date: 20180216
  Transmission Date: 20180509
  Serious: Yes (Other)
  Sender: FDA-Public Use
  Company Number: US-ROCHE-1773320

PATIENT
  Age: 63 Year
  Sex: Female
  Weight: 51.3 kg

DRUGS (6)
  1. ABT-888 [Suspect]
     Active Substance: VELIPARIB
     Indication: OVARIAN EPITHELIAL CANCER
     Dosage: DATE OF LAST DOSE PRIOR TO SAE: 07/MAR/2016
     Route: 048
     Dates: start: 20151116, end: 20160307
  2. CARBOPLATIN. [Suspect]
     Active Substance: CARBOPLATIN
     Indication: OVARIAN EPITHELIAL CANCER
     Dosage: DATE OF LAST DOSE PRIOR TO SAE: 03/MAR/2016?AUC = 6 OVER 30 MINS ON DAY 1
     Route: 042
     Dates: start: 20151118, end: 20160303
  3. PACLITAXEL. [Suspect]
     Active Substance: PACLITAXEL
     Indication: OVARIAN EPITHELIAL CANCER
     Dosage: DATE OF LAST DOSE PRIOR TO SAE: 03/MAR/2016?175 MG/M2 IV OVER 3 HRS ON DAY 1
     Route: 042
     Dates: start: 20151118, end: 20160303
  4. PACLITAXEL. [Suspect]
     Active Substance: PACLITAXEL
     Dosage: DATE OF LAST DOSE PRIOR TO SAE: 03/MAR/2016?AUC = 6 OVER 30 MINS ON DAY 1
     Route: 042
     Dates: start: 20151118, end: 20160303
  5. BEVACIZUMAB. [Suspect]
     Active Substance: BEVACIZUMAB
     Indication: OVARIAN EPITHELIAL CANCER
     Dosage: OVER 30-90 MINS ON DAY 1?DATE OF LAST DOSE PRIOR TO SAE: 14/APR/2016
     Route: 042
     Dates: start: 20151210
  6. CARBOPLATIN. [Suspect]
     Active Substance: CARBOPLATIN
     Dosage: DATE OF LAST DOSE PRIOR TO SAE: 03/MAR/2016, ?AUC = 6 OVER 30 MINS ON DAY 1
     Route: 042
     Dates: start: 20151118, end: 20160303

REACTIONS (10)
  - Alanine aminotransferase increased [Unknown]
  - Hypokalaemia [Unknown]
  - Proteinuria [Recovering/Resolving]
  - Hypoalbuminaemia [Unknown]
  - Aspartate aminotransferase increased [Unknown]
  - Urinary tract obstruction [Unknown]
  - Neutrophil count decreased [Unknown]
  - White blood cell count decreased [Unknown]
  - Febrile neutropenia [Unknown]
  - Enterocolitis infectious [Unknown]

NARRATIVE: CASE EVENT DATE: 20160505
